FAERS Safety Report 12951161 (Version 1)
Quarter: 2016Q4

REPORT INFORMATION
  Report Type: Spontaneous
  Country: US (occurrence: US)
  Receive Date: 20161117
  Receipt Date: 20161117
  Transmission Date: 20170207
  Serious: No
  Sender: FDA-Public Use
  Company Number: US-MYLANLABS-2016M1006346

PATIENT
  Age: 61 Year

DRUGS (1)
  1. VALSARTAN AND HYDROCHLOROTHIAZIDE TABLETS, USP [Suspect]
     Active Substance: HYDROCHLOROTHIAZIDE\VALSARTAN
     Dosage: 160/25 MG, QD
     Route: 048
     Dates: start: 20150306

REACTIONS (1)
  - Rash [Not Recovered/Not Resolved]
